FAERS Safety Report 18086592 (Version 1)
Quarter: 2020Q3

REPORT INFORMATION
  Report Type: Spontaneous
  Country: US (occurrence: US)
  Receive Date: 20200728
  Receipt Date: 20200728
  Transmission Date: 20201103
  Serious: No
  Sender: FDA-Public Use
  Company Number: None

PATIENT
  Age: 27 Year
  Sex: Male
  Weight: 81 kg

DRUGS (1)
  1. METHYLPHENIDATE 54MG ER OSM (GENERIC FOR CONCERTA 54MG ER) [Suspect]
     Active Substance: METHYLPHENIDATE HYDROCHLORIDE
     Indication: ATTENTION DEFICIT HYPERACTIVITY DISORDER
     Dosage: ?
     Route: 048
     Dates: start: 20150601, end: 20200728

REACTIONS (6)
  - Feeling jittery [None]
  - Product quality issue [None]
  - Dry mouth [None]
  - Depressed mood [None]
  - Dry skin [None]
  - Musculoskeletal stiffness [None]

NARRATIVE: CASE EVENT DATE: 20200728
